FAERS Safety Report 13800911 (Version 1)
Quarter: 2017Q3

REPORT INFORMATION
  Report Type: Spontaneous
  Country: IT (occurrence: IT)
  Receive Date: 20170727
  Receipt Date: 20170727
  Transmission Date: 20171127
  Serious: Yes (Death)
  Sender: FDA-Public Use
  Company Number: IT-PFIZER INC-731007

PATIENT
  Age: 40 Year
  Sex: Male

DRUGS (3)
  1. DAUNORUBICIN [Suspect]
     Active Substance: DAUNORUBICIN
     Indication: PRODUCT USED FOR UNKNOWN INDICATION
     Dosage: 25 MG, DAILY
     Route: 065
     Dates: start: 20070525, end: 20070530
  2. VP-16 [Suspect]
     Active Substance: ETOPOSIDE
     Indication: PRODUCT USED FOR UNKNOWN INDICATION
     Dosage: 85 MG, DAILY
     Route: 065
     Dates: start: 20070525, end: 20070530
  3. CYTARABINE. [Suspect]
     Active Substance: CYTARABINE
     Indication: PRODUCT USED FOR UNKNOWN INDICATION
     Dosage: 170 MG, DAILY
     Route: 065
     Dates: start: 20070525, end: 20070603

REACTIONS (3)
  - Septic shock [Fatal]
  - Acute kidney injury [Fatal]
  - Neutropenic colitis [Fatal]

NARRATIVE: CASE EVENT DATE: 20070601
